FAERS Safety Report 22162975 (Version 2)
Quarter: 2024Q3

REPORT INFORMATION
  Report Type: Spontaneous
  Country: GR (occurrence: GR)
  Receive Date: 20230401
  Receipt Date: 20240710
  Transmission Date: 20241016
  Serious: Yes (Hospitalization, Other)
  Sender: CELLTRION
  Company Number: GR-CELLTRION INC.-2023GR006299

PATIENT

DRUGS (9)
  1. REMICADE [Suspect]
     Active Substance: INFLIXIMAB
     Indication: Crohn^s disease
     Dosage: 275 MG
     Route: 042
     Dates: start: 20220511
  2. REMICADE [Suspect]
     Active Substance: INFLIXIMAB
     Dosage: 275 MG
     Route: 042
     Dates: start: 20220526
  3. REMICADE [Suspect]
     Active Substance: INFLIXIMAB
     Dosage: 275 MG
     Route: 042
  4. REMICADE [Suspect]
     Active Substance: INFLIXIMAB
     Dosage: 275 MG
     Route: 042
     Dates: start: 20220511
  5. INFLIXIMAB [Suspect]
     Active Substance: INFLIXIMAB
     Indication: Crohn^s disease
     Dosage: 275 MG
     Route: 042
     Dates: start: 20220511
  6. INFLIXIMAB [Suspect]
     Active Substance: INFLIXIMAB
     Dosage: 275 MG
     Route: 042
     Dates: start: 20220526
  7. INFLIXIMAB [Suspect]
     Active Substance: INFLIXIMAB
     Dosage: 275 MG
     Route: 042
  8. INFLIXIMAB [Suspect]
     Active Substance: INFLIXIMAB
     Dosage: 275 MG
     Route: 042
     Dates: start: 20220511
  9. ADALIMUMAB [Suspect]
     Active Substance: ADALIMUMAB\ISOPROPYL ALCOHOL
     Indication: Crohn^s disease
     Dosage: UNKNOWN

REACTIONS (3)
  - Crohn^s disease [Unknown]
  - Drug-induced liver injury [Recovered/Resolved]
  - Therapeutic product effect incomplete [Unknown]
